FAERS Safety Report 8108147-3 (Version None)
Quarter: 2011Q4

REPORT INFORMATION
  Report Type: 
  Country: None (occurrence: None)
  Receive Date: 20111227
  Receipt Date: 20111108
  Transmission Date: 20120403
  Serious: Yes (Other)
  Sender: FDA-Public Use
  Company Number: PHEH2011US06377

PATIENT
  Age: 48 Year
  Sex: Female

DRUGS (5)
  1. FAMPRIDINE (FAMPRIDINE) [Concomitant]
  2. BACLOFEN [Concomitant]
  3. GILENYA [Suspect]
     Indication: MULTIPLE SCLEROSIS
     Dosage: 0.5 MG, QD, ORAL
     Route: 048
     Dates: start: 20110920, end: 20111011
  4. PROVIGIL [Concomitant]
  5. VENLAFAXINE [Concomitant]

REACTIONS (7)
  - RASH PUSTULAR [None]
  - HERPES ZOSTER [None]
  - SKIN CANDIDA [None]
  - SKIN OEDEMA [None]
  - RASH ERYTHEMATOUS [None]
  - CELLULITIS [None]
  - STAPHYLOCOCCAL INFECTION [None]
